FAERS Safety Report 10310516 (Version 2)
Quarter: 2014Q4

REPORT INFORMATION
  Report Type: Spontaneous
  Country: JP (occurrence: JP)
  Receive Date: 20140717
  Receipt Date: 20141010
  Transmission Date: 20150528
  Serious: Yes (Hospitalization, Other)
  Sender: FDA-Public Use
  Company Number: JP-ASTRAZENECA-2014SE50961

PATIENT
  Age: 45 Year
  Sex: Male

DRUGS (3)
  1. MEROPEN [Suspect]
     Active Substance: MEROPENEM
     Indication: EXTRADURAL ABSCESS
     Route: 042
  2. PREDNISOLONE. [Concomitant]
     Active Substance: PREDNISOLONE
     Indication: RHEUMATOID ARTHRITIS
  3. METHOTREXATE [Suspect]
     Active Substance: METHOTREXATE
     Indication: RHEUMATOID ARTHRITIS
     Dosage: 6MG/WEEK

REACTIONS (3)
  - Acute kidney injury [Recovering/Resolving]
  - Thrombotic microangiopathy [Unknown]
  - Skin ulcer [Recovering/Resolving]
